FAERS Safety Report 24441087 (Version 2)
Quarter: 2024Q4

REPORT INFORMATION
  Report Type: Spontaneous
  Country: US (occurrence: US)
  Receive Date: 20241016
  Receipt Date: 20241017
  Transmission Date: 20250115
  Serious: No
  Sender: ROCHE
  Company Number: US-ROCHE-3469001

PATIENT
  Sex: Male

DRUGS (1)
  1. HEMLIBRA [Suspect]
     Active Substance: EMICIZUMAB-KXWH
     Indication: Factor VIII deficiency
     Dosage: STRENGTH: 30 MG/ML?USE 0.7 ML FROM ONE 30 MG VIAL AS ONE INJECTION AND 0.4 ML FROM ONE 60 MG VIAL PL
     Route: 058
     Dates: start: 201903

REACTIONS (1)
  - Haemorrhage [Unknown]
